FAERS Safety Report 20238047 (Version 1)
Quarter: 2021Q4

REPORT INFORMATION
  Report Type: Spontaneous
  Country: US (occurrence: US)
  Receive Date: 20211228
  Receipt Date: 20211228
  Transmission Date: 20220304
  Serious: No
  Sender: FDA-Public Use
  Company Number: US-PERRIGO-21US010416

PATIENT
  Age: 55 Year
  Sex: Female
  Weight: 58.957 kg

DRUGS (2)
  1. TIOCONAZOLE [Suspect]
     Active Substance: TIOCONAZOLE
     Indication: Vulvovaginal mycotic infection
     Dosage: 300 MG, SINGLE
     Route: 067
     Dates: start: 20210726, end: 20210726
  2. ESTROGENS [Concomitant]
     Active Substance: ESTROGENS
     Indication: Hormone level abnormal
     Dosage: UNKNOWN, UNKNOWN
     Route: 065

REACTIONS (3)
  - Labia enlarged [Recovering/Resolving]
  - Vulvovaginal pain [Recovering/Resolving]
  - Vulvovaginal burning sensation [Recovering/Resolving]

NARRATIVE: CASE EVENT DATE: 20210726
